FAERS Safety Report 15877871 (Version 2)
Quarter: 2019Q1

REPORT INFORMATION
  Report Type: Report from Study
  Country: CR (occurrence: CR)
  Receive Date: 20190128
  Receipt Date: 20190222
  Transmission Date: 20190417
  Serious: Yes (Hospitalization, Other)
  Sender: FDA-Public Use
  Company Number: CR-SANIK-2019SA020074AA

PATIENT
  Age: 80 Year
  Sex: Female

DRUGS (1)
  1. CLOPIDOGREL BISULFATE. [Suspect]
     Active Substance: CLOPIDOGREL BISULFATE
     Indication: THROMBOSIS PROPHYLAXIS
     Dosage: 1 DF (75 MG), QD
     Route: 048
     Dates: start: 201701

REACTIONS (5)
  - Catheter placement [Unknown]
  - Ill-defined disorder [Unknown]
  - Jaw fracture [Unknown]
  - Disorientation [Unknown]
  - Fall [Unknown]

NARRATIVE: CASE EVENT DATE: 201801
